FAERS Safety Report 13820772 (Version 1)
Quarter: 2017Q3

REPORT INFORMATION
  Report Type: Spontaneous
  Country: US (occurrence: US)
  Receive Date: 20170801
  Receipt Date: 20170801
  Transmission Date: 20171127
  Serious: No
  Sender: FDA-Public Use
  Company Number: US-TEVA-777528USA

PATIENT
  Sex: Female

DRUGS (1)
  1. DICLOFENAC W/MISOPROSTOL [Suspect]
     Active Substance: DICLOFENAC SODIUM\MISOPROSTOL
     Dosage: DICLOFENAC: 75MG/ MISOPROSTOL: 0.2MG

REACTIONS (1)
  - Malaise [Unknown]
